FAERS Safety Report 18044093 (Version 4)
Quarter: 2020Q3

REPORT INFORMATION
  Report Type: Spontaneous
  Country: US (occurrence: US)
  Receive Date: 20200720
  Receipt Date: 20200918
  Transmission Date: 20201103
  Serious: No
  Sender: FDA-Public Use
  Company Number: US-SA-2020SA186548

PATIENT

DRUGS (2)
  1. TOUJEO [Suspect]
     Active Substance: INSULIN GLARGINE
     Indication: TYPE 1 DIABETES MELLITUS
     Dosage: 20 IU, QD
     Route: 065
     Dates: start: 20200712
  2. TOUJEO [Suspect]
     Active Substance: INSULIN GLARGINE
     Dosage: 18 IU, QD
     Route: 065
     Dates: start: 20200712

REACTIONS (5)
  - Blood glucose increased [Recovered/Resolved]
  - Product storage error [Unknown]
  - Glycosylated haemoglobin increased [Unknown]
  - Feeling abnormal [Recovered/Resolved]
  - Blood glucose decreased [Unknown]
